FAERS Safety Report 7489093-5 (Version None)
Quarter: 2011Q2

REPORT INFORMATION
  Report Type: 
  Country: None (occurrence: None)
  Receive Date: 20110518
  Receipt Date: 20110511
  Transmission Date: 20111010
  Serious: Yes (Death)
  Sender: FDA-Public Use
  Company Number: FR-KINGPHARMUSA00001-K201100584

PATIENT
  Age: 81 Year
  Sex: Female

DRUGS (3)
  1. FELODIPINE [Suspect]
     Indication: HYPERTENSION
     Dosage: 2.5 MG, QD
     Route: 048
     Dates: start: 20060101
  2. DILACORAN [Concomitant]
     Indication: HYPERTENSION
     Dosage: 80 MG, Q24H
     Dates: start: 20060101
  3. ALTACE [Suspect]
     Indication: HYPERTENSION
     Dosage: 2.5 MG, QD
     Route: 048
     Dates: start: 20060101

REACTIONS (1)
  - DEATH [None]
